FAERS Safety Report 11180410 (Version 1)
Quarter: 2015Q2

REPORT INFORMATION
  Report Type: Spontaneous
  Country: NL (occurrence: NL)
  Receive Date: 20150611
  Receipt Date: 20150611
  Transmission Date: 20150821
  Serious: Yes (Hospitalization)
  Sender: FDA-Public Use
  Company Number: NL-TEVA-568427ISR

PATIENT
  Age: 30 Year
  Sex: Female
  Weight: 80 kg

DRUGS (2)
  1. METHYLDOPA TABLET 125MG [Suspect]
     Active Substance: METHYLDOPA
     Indication: HYPERTENSION
     Route: 048
     Dates: start: 201308
  2. NON SPECIFIED INSULIN [Concomitant]

REACTIONS (1)
  - Psychotic disorder [Recovering/Resolving]

NARRATIVE: CASE EVENT DATE: 201309
